FAERS Safety Report 9945621 (Version 1)
Quarter: 2014Q1

REPORT INFORMATION
  Report Type: Report from Study
  Country: US (occurrence: US)
  Receive Date: 20140303
  Receipt Date: 20140303
  Transmission Date: 20141002
  Serious: No
  Sender: FDA-Public Use
  Company Number: US-ABBVIE-13P-163-1049518-00

PATIENT
  Age: 38 Year
  Sex: Female
  Weight: 61.74 kg

DRUGS (2)
  1. HUMIRA [Suspect]
     Indication: CROHN^S DISEASE
     Dates: start: 201007
  2. HUMIRA [Suspect]

REACTIONS (7)
  - Malaise [Recovering/Resolving]
  - Genital abscess [Recovering/Resolving]
  - Furuncle [Recovered/Resolved]
  - Furuncle [Recovering/Resolving]
  - Bronchitis [Not Recovered/Not Resolved]
  - Diarrhoea haemorrhagic [Recovered/Resolved]
  - Furuncle [Recovering/Resolving]
